FAERS Safety Report 7505954-2 (Version None)
Quarter: 2011Q2

REPORT INFORMATION
  Report Type: 
  Country: None (occurrence: None)
  Receive Date: 20110411
  Receipt Date: 20100512
  Transmission Date: 20111010
  Serious: Yes (Other)
  Sender: FDA-Public Use
  Company Number: AE 2010-084

PATIENT
  Age: 38 Year
  Sex: Male

DRUGS (2)
  1. DETROL [Concomitant]
  2. FAZACLO ODT [Suspect]
     Indication: PRODUCT USED FOR UNKNOWN INDICATION
     Dosage: 150MG DAILY PO
     Route: 048
     Dates: start: 20100426, end: 20100506

REACTIONS (1)
  - URINARY INCONTINENCE [None]
